FAERS Safety Report 7624644-9 (Version None)
Quarter: 2011Q3

REPORT INFORMATION
  Report Type: 
  Country: None (occurrence: None)
  Receive Date: 20110720
  Receipt Date: 20110711
  Transmission Date: 20111222
  Serious: Yes (Hospitalization)
  Sender: FDA-Public Use
  Company Number: US-ASTRAZENECA-2011SE41037

PATIENT
  Age: 81 Year
  Sex: Female

DRUGS (13)
  1. CALCIUM AND VITAMIN D [Concomitant]
  2. FEXOFENADINE [Concomitant]
  3. CLONIDINE [Concomitant]
  4. SEROQUEL XR [Suspect]
     Indication: SCHIZOPHRENIA
     Route: 048
  5. KEPPRA [Concomitant]
  6. LISINOPRIL [Concomitant]
  7. ALBUTEROL SULFATE AUTOHALER [Concomitant]
  8. LOVASTATIN [Concomitant]
  9. FLONASE [Concomitant]
  10. VITAMIN B [Concomitant]
     Dosage: MONTH
  11. FOSAMAX [Concomitant]
  12. EXELON [Concomitant]
  13. ACETAMINOPHEN [Concomitant]

REACTIONS (2)
  - HIP FRACTURE [None]
  - REHABILITATION THERAPY [None]
